FAERS Safety Report 8222426-0 (Version None)
Quarter: 2012Q1

REPORT INFORMATION
  Report Type: 
  Country: None (occurrence: None)
  Receive Date: 20120320
  Receipt Date: 20120312
  Transmission Date: 20120608
  Serious: Yes (Hospitalization, Other)
  Sender: FDA-Public Use
  Company Number: JP-VERTEX PHARMACEUTICALS INC.-AE-2012-003684

PATIENT
  Age: 66 Year
  Sex: Female

DRUGS (12)
  1. SELBEX [Concomitant]
     Route: 048
     Dates: start: 20120125
  2. TOUGHMAC E [Concomitant]
     Dates: start: 20120125
  3. TELAVIC (TELAPREVIR) [Suspect]
     Indication: HEPATITIS C
     Route: 048
     Dates: start: 20120124, end: 20120212
  4. PEGINTERFERON ALFA-2B [Concomitant]
     Indication: HEPATITIS C
     Route: 051
     Dates: start: 20120124, end: 20120227
  5. RIBAVIRIN [Concomitant]
     Route: 048
     Dates: start: 20120220, end: 20120226
  6. TELAVIC (TELAPREVIR) [Suspect]
     Route: 048
     Dates: start: 20120213, end: 20120301
  7. RIBAVIRIN [Concomitant]
     Route: 048
     Dates: start: 20120227, end: 20120301
  8. RIBAVIRIN [Concomitant]
     Indication: HEPATITIS C
     Route: 048
     Dates: start: 20120124
  9. VOLTAREN-XR [Concomitant]
     Route: 048
     Dates: start: 20120125
  10. MOTILIUM [Concomitant]
     Route: 048
     Dates: start: 20120223
  11. VOLTAREN [Concomitant]
     Route: 048
  12. FUNGIZONE [Concomitant]
     Route: 048
     Dates: start: 20120214

REACTIONS (2)
  - DECREASED APPETITE [None]
  - ANAEMIA [None]
